FAERS Safety Report 6704773-4 (Version None)
Quarter: 2010Q2

REPORT INFORMATION
  Report Type: 
  Country: None (occurrence: None)
  Receive Date: 20100430
  Receipt Date: 20100406
  Transmission Date: 20101027
  Serious: No
  Sender: FDA-Public Use
  Company Number: US-ASTRAZENECA-2009SE30553

PATIENT
  Age: 56 Year
  Sex: Female
  Weight: 71.7 kg

DRUGS (14)
  1. NEXIUM [Suspect]
     Indication: EROSIVE OESOPHAGITIS
     Route: 048
     Dates: start: 20010101
  2. NEXIUM [Suspect]
     Indication: OESOPHAGEAL STENOSIS
     Route: 048
     Dates: start: 20010101
  3. NEXIUM [Suspect]
     Route: 048
     Dates: start: 20090101
  4. NEXIUM [Suspect]
     Route: 048
     Dates: start: 20090101
  5. CELEBREX [Concomitant]
  6. ASPIRIN [Concomitant]
  7. TRAZODONE HCL [Concomitant]
  8. MAXZIDE [Concomitant]
  9. VITAMINS [Concomitant]
  10. ESTRADIOL [Concomitant]
  11. ASTELINE [Concomitant]
  12. VIT.D [Concomitant]
  13. FISH OIL [Concomitant]
  14. ULTRAM [Concomitant]

REACTIONS (3)
  - DRUG DOSE OMISSION [None]
  - EROSIVE OESOPHAGITIS [None]
  - OESOPHAGEAL STENOSIS [None]
